FAERS Safety Report 8211179-8 (Version None)
Quarter: 2012Q1

REPORT INFORMATION
  Report Type: 
  Country: None (occurrence: None)
  Receive Date: 20120315
  Receipt Date: 20120307
  Transmission Date: 20120608
  Serious: Yes (Hospitalization)
  Sender: FDA-Public Use
  Company Number: IT-SANOFI-AVENTIS-2012SA013478

PATIENT
  Age: 69 Year
  Sex: Female

DRUGS (1)
  1. TRENTAL [Suspect]
     Route: 048
     Dates: start: 20111104, end: 20111113

REACTIONS (4)
  - HEADACHE [None]
  - VOMITING [None]
  - HYPERHIDROSIS [None]
  - NAUSEA [None]
